FAERS Safety Report 10776815 (Version 1)
Quarter: 2015Q1

REPORT INFORMATION
  Report Type: Spontaneous
  Country: IT (occurrence: IT)
  Receive Date: 20150209
  Receipt Date: 20150209
  Transmission Date: 20150721
  Serious: Yes (Hospitalization)
  Sender: FDA-Public Use
  Company Number: IT-SA-2015SA012069

PATIENT
  Age: 55 Year
  Sex: Female

DRUGS (14)
  1. PLAVIX [Concomitant]
     Active Substance: CLOPIDOGREL BISULFATE
  2. EUTIROX [Concomitant]
     Active Substance: LEVOTHYROXINE SODIUM
  3. BARACLUDE [Concomitant]
     Active Substance: ENTECAVIR
  4. FOSAVANCE [Concomitant]
     Active Substance: ALENDRONATE SODIUM\CHOLECALCIFEROL
  5. ARAVA [Suspect]
     Active Substance: LEFLUNOMIDE
     Indication: RHEUMATOID ARTHRITIS
     Route: 048
     Dates: start: 20100226, end: 20140317
  6. CARDICOR [Concomitant]
     Active Substance: BISOPROLOL
  7. TORVAST [Concomitant]
     Active Substance: ATORVASTATIN
  8. RAMIPRIL. [Concomitant]
     Active Substance: RAMIPRIL
  9. PREDNISONE. [Concomitant]
     Active Substance: PREDNISONE
  10. BLOPRESS [Concomitant]
     Active Substance: CANDESARTAN CILEXETIL
  11. SIMPONI [Suspect]
     Active Substance: GOLIMUMAB
     Indication: RHEUMATOID ARTHRITIS
     Route: 058
     Dates: start: 20130912, end: 20140317
  12. MEPRAL [Concomitant]
     Active Substance: OMEPRAZOLE SODIUM
  13. NERIXIA [Concomitant]
  14. ARTROTEC [Concomitant]
     Active Substance: DICLOFENAC SODIUM

REACTIONS (1)
  - Infected skin ulcer [Recovering/Resolving]

NARRATIVE: CASE EVENT DATE: 20140317
